FAERS Safety Report 21949805 (Version 1)
Quarter: 2023Q1

REPORT INFORMATION
  Report Type: Spontaneous
  Country: US (occurrence: None)
  Receive Date: 20230202
  Receipt Date: 20230202
  Transmission Date: 20230418
  Serious: Yes (Disabling)
  Sender: FDA-Public Use
  Company Number: None

PATIENT
  Age: 55 Year
  Sex: Female

DRUGS (1)
  1. BOTOX [Suspect]
     Active Substance: ONABOTULINUMTOXINA
     Indication: Migraine
     Dates: start: 20220201, end: 20221122

REACTIONS (6)
  - Eyelid ptosis [None]
  - Headache [None]
  - Nausea [None]
  - Photophobia [None]
  - Impaired work ability [None]
  - Wrong technique in device usage process [None]

NARRATIVE: CASE EVENT DATE: 20221122
